FAERS Safety Report 5015663-X (Version None)
Quarter: 2006Q2

REPORT INFORMATION
  Report Type: 
  Country: None (occurrence: None)
  Receive Date: 20060601
  Receipt Date: 20060413
  Transmission Date: 20061013
  Serious: Yes (Disabling)
  Sender: FDA-Public Use
  Company Number: GR-GLAXOSMITHKLINE-B0421439A

PATIENT
  Age: 70 Year
  Sex: Male

DRUGS (1)
  1. AVANDIA [Suspect]
     Dosage: 8MG PER DAY
     Route: 048
     Dates: start: 20051105, end: 20060315

REACTIONS (3)
  - BLINDNESS [None]
  - MACULAR OEDEMA [None]
  - VISUAL ACUITY REDUCED [None]
